FAERS Safety Report 24722617 (Version 2)
Quarter: 2024Q4

REPORT INFORMATION
  Report Type: Report from Study
  Country: US (occurrence: US)
  Receive Date: 20241211
  Receipt Date: 20241224
  Transmission Date: 20250115
  Serious: Yes (Hospitalization, Other)
  Sender: GILEAD
  Company Number: US-GILEAD-2024-0696510

PATIENT
  Age: 69 Year
  Sex: Female
  Weight: 281.1 kg

DRUGS (25)
  1. SACITUZUMAB GOVITECAN-HZIY [Suspect]
     Active Substance: SACITUZUMAB GOVITECAN-HZIY
     Indication: Fallopian tube cancer
     Dosage: UNK C1D1
     Route: 065
     Dates: start: 20241125
  2. SACITUZUMAB GOVITECAN-HZIY [Suspect]
     Active Substance: SACITUZUMAB GOVITECAN-HZIY
     Dosage: UNK C1D8
     Route: 065
     Dates: start: 20241202
  3. CISPLATIN [Suspect]
     Active Substance: CISPLATIN
     Indication: Fallopian tube cancer
     Dosage: UNK
     Route: 065
  4. TYLENOL [Concomitant]
     Active Substance: ACETAMINOPHEN
     Indication: Pain
     Dosage: TAKE 1 TABLET BY MOUNTH EVERY 6 HOURS AS NEEDED FOR PAIN
     Route: 048
  5. MAALOX ADVANCED [CALCIUM CARBONATE;SIMETICONE] [Concomitant]
     Dosage: TAKE 30 ML BY MOUTH EVERY 6 HOURS AS NEEDED
     Route: 048
  6. ELIQUIS [Concomitant]
     Active Substance: APIXABAN
     Dosage: TAKE 1 TABLET BY MOUTH EVERY 12 HOURS SCHEDULED
     Route: 048
  7. ELIQUIS [Concomitant]
     Active Substance: APIXABAN
     Dosage: 2.5 MG, BID
     Dates: start: 20241213
  8. CEPACOL [BENZOCAINE] [Concomitant]
     Dosage: 15 - 3.6 MG. AS DIRECTED
  9. CALCIUM CARBONATE\CHOLECALCIFEROL [Concomitant]
     Active Substance: CALCIUM CARBONATE\CHOLECALCIFEROL
     Dosage: TAKE 1 TABLE BY MOUTH ONCE DAILY.
     Route: 048
  10. VITAMIN B12 [Concomitant]
     Active Substance: CYANOCOBALAMIN
     Dosage: PLACE 1 TABLET UNDER THE TOUNGUE ONCE DAILY.
  11. CHOLECALCIFEROL [Concomitant]
     Active Substance: CHOLECALCIFEROL
     Dosage: TAKE 1 CAPSULE BY MOUTH ONCE DAILY
     Route: 048
  12. DECADRON [Concomitant]
     Active Substance: DEXAMETHASONE
     Dosage: TAKE 2 TABLETS BY MOUTH. 8 MG ON DAY 2 THEN 8 MG EVERY 12 HR.
     Route: 048
  13. IMODIUM A-D [Concomitant]
     Active Substance: LOPERAMIDE HYDROCHLORIDE
     Indication: Diarrhoea
     Dosage: TAKE 1 CAPSULE BY MOUTH 4 TIMES DAILY AS NEEDED.
     Route: 048
  14. MAGNESIUM CHLORIDE [Concomitant]
     Active Substance: MAGNESIUM CHLORIDE
     Dosage: TAKE 360MG BY MOUTH ONCE DAILY
     Route: 048
  15. NYSTATIN [Concomitant]
     Active Substance: NYSTATIN
     Dosage: TAKE 5 ML, QID AS NEEDED.
     Route: 048
  16. COMPAZINE [Concomitant]
     Active Substance: PROCHLORPERAZINE MALEATE
     Dosage: 10 MG, QID
     Route: 048
  17. CARAFATE [Concomitant]
     Active Substance: SUCRALFATE
     Dosage: 10 ML, TID
     Route: 048
  18. LOPERAMIDE HYDROCHLORIDE [Concomitant]
     Active Substance: LOPERAMIDE HYDROCHLORIDE
     Indication: Diarrhoea
     Dosage: TAKE 4 TABLET BY MOUTH 4 TIMES DAILY AS NEEDED.
  19. LOPERAMIDE HYDROCHLORIDE [Concomitant]
     Active Substance: LOPERAMIDE HYDROCHLORIDE
     Dosage: 2.5 MG, QID
  20. APIXABAN [Concomitant]
     Active Substance: APIXABAN
     Dosage: UNK
     Dates: start: 20240422
  21. ACETAMINOPHEN [Concomitant]
     Active Substance: ACETAMINOPHEN
     Dosage: UNK
     Dates: start: 20240318
  22. VITAMIN D3 [Concomitant]
     Active Substance: CHOLECALCIFEROL
     Dosage: UNK
     Dates: start: 20240710
  23. PROCHLORPERAZINE [Concomitant]
     Active Substance: PROCHLORPERAZINE
     Dosage: UNK
     Dates: start: 20241202
  24. CIPRO [Concomitant]
     Active Substance: CIPROFLOXACIN HYDROCHLORIDE
  25. FLAGYL [Concomitant]
     Active Substance: METRONIDAZOLE\METRONIDAZOLE HYDROCHLORIDE

REACTIONS (8)
  - Pharyngeal inflammation [Unknown]
  - White blood cell count decreased [Unknown]
  - Colitis [Unknown]
  - Pancytopenia [Unknown]
  - Febrile neutropenia [Unknown]
  - Neutropenia [Unknown]
  - Diarrhoea [Unknown]
  - Fatigue [Unknown]

NARRATIVE: CASE EVENT DATE: 20241207
